FAERS Safety Report 9225339 (Version 2)
Quarter: 2013Q2

REPORT INFORMATION
  Report Type: Spontaneous
  Country: IL (occurrence: IL)
  Receive Date: 20130411
  Receipt Date: 20130617
  Transmission Date: 20140414
  Serious: Yes (Other)
  Sender: FDA-Public Use
  Company Number: IL-ROCHE-1210565

PATIENT
  Age: 39 Year
  Sex: Female

DRUGS (2)
  1. ACTILYSE [Suspect]
     Indication: PULMONARY EMBOLISM
     Route: 042
  2. UNFRACTIONATED HEPARIN [Concomitant]
     Indication: PULMONARY EMBOLISM
     Dosage: DAILY DOSE: 34,000 UNITS
     Route: 042

REACTIONS (2)
  - Abortion induced [Unknown]
  - Exposure during pregnancy [Unknown]
